FAERS Safety Report 5012016-5 (Version None)
Quarter: 2006Q2

REPORT INFORMATION
  Report Type: 
  Country: None (occurrence: None)
  Receive Date: 20060526
  Receipt Date: 20060519
  Transmission Date: 20061013
  Serious: Yes (Hospitalization)
  Sender: FDA-Public Use
  Company Number: BR-JNJFOC-20060501702

PATIENT
  Age: 54 Year
  Sex: Female

DRUGS (6)
  1. RISPERDAL [Suspect]
  2. RISPERDAL [Suspect]
  3. RISPERDAL [Suspect]
     Indication: SCHIZOPHRENIA
  4. RISPERDAL CONSTA [Suspect]
     Indication: SCHIZOPHRENIA
     Route: 030
  5. AMPLICTIL [Concomitant]
  6. RIVOTRIL [Concomitant]

REACTIONS (6)
  - AGGRESSION [None]
  - DELIRIUM [None]
  - DRUG INEFFECTIVE [None]
  - GAIT DISTURBANCE [None]
  - HALLUCINATION [None]
  - HYPERGLYCAEMIA [None]
